FAERS Safety Report 7047828-X (Version None)
Quarter: 2010Q4

REPORT INFORMATION
  Report Type: 
  Country: None (occurrence: None)
  Receive Date: 20101015
  Receipt Date: 20101005
  Transmission Date: 20110411
  Serious: No
  Sender: FDA-Public Use
  Company Number: US-PFIZER INC-2010116519

PATIENT
  Age: 46 Year
  Sex: Female
  Weight: 78.005 kg

DRUGS (1)
  1. TOVIAZ [Suspect]
     Indication: POLLAKIURIA
     Dosage: 4 MG, DAILY
     Route: 048
     Dates: start: 20100803, end: 20100806

REACTIONS (2)
  - ABDOMINAL DISTENSION [None]
  - ERUCTATION [None]
